FAERS Safety Report 13940879 (Version 2)
Quarter: 2018Q2

REPORT INFORMATION
  Report Type: Spontaneous
  Country: US (occurrence: US)
  Receive Date: 20170906
  Receipt Date: 20180626
  Transmission Date: 20180711
  Serious: Yes (Death, Life-Threatening, Hospitalization, Other)
  Sender: FDA-Public Use
  Company Number: US-SYNTHON BV-NL01PV17_44664

PATIENT
  Age: 72 Year
  Sex: Male

DRUGS (3)
  1. TAMSULOSIN [Suspect]
     Active Substance: TAMSULOSIN
     Dosage: UNK
     Route: 048
  2. CILOSTAZOL. [Interacting]
     Active Substance: CILOSTAZOL
     Dosage: UNK
     Route: 048
  3. METFORMIN [Concomitant]
     Active Substance: METFORMIN HYDROCHLORIDE
     Dosage: UNK

REACTIONS (10)
  - Hypotension [Fatal]
  - Abnormal behaviour [Unknown]
  - Pain [Unknown]
  - Intentional overdose [Fatal]
  - Diarrhoea [Unknown]
  - Agitation [Unknown]
  - Confusional state [Unknown]
  - Drug interaction [Fatal]
  - Vomiting [Unknown]
  - Mental impairment [Unknown]
